FAERS Safety Report 22612896 (Version 1)
Quarter: 2023Q2

REPORT INFORMATION
  Report Type: Spontaneous
  Country: IL (occurrence: IL)
  Receive Date: 20230617
  Receipt Date: 20230617
  Transmission Date: 20230721
  Serious: Yes (Death, Other)
  Sender: FDA-Public Use
  Company Number: IL-JAZZ PHARMACEUTICALS-2023-IL-013025

PATIENT
  Age: 62 Year
  Sex: Female

DRUGS (1)
  1. VYXEOS [Suspect]
     Active Substance: CYTARABINE\DAUNORUBICIN
     Indication: Acute myeloid leukaemia
     Dosage: ONE INDUCTION CYCLE
     Dates: start: 202303

REACTIONS (2)
  - Acute myeloid leukaemia [Fatal]
  - Therapy non-responder [Unknown]
